FAERS Safety Report 11512328 (Version 1)
Quarter: 2015Q3

REPORT INFORMATION
  Report Type: Spontaneous
  Country: US (occurrence: None)
  Receive Date: 20150914
  Receipt Date: 20150914
  Transmission Date: 20151125
  Serious: Yes (Hospitalization)
  Sender: FDA-Public Use
  Company Number: CPI 7058

PATIENT
  Age: 68 Year
  Sex: Male

DRUGS (14)
  1. CARDIOASPIRIN [Concomitant]
     Active Substance: ASPIRIN
  2. FUROSEMIDE. [Concomitant]
     Active Substance: FUROSEMIDE
  3. BISOPROLOL [Concomitant]
     Active Substance: BISOPROLOL
  4. IRON SULPHATE [Concomitant]
     Active Substance: FERROUS SULFATE ANHYDROUS
  5. IRON [Concomitant]
     Active Substance: IRON
  6. DIURETICS [Concomitant]
     Active Substance: UNSPECIFIED INGREDIENT
  7. CALCITRIOL. [Concomitant]
     Active Substance: CALCITRIOL
  8. POTASSIUM CANREONATE [Concomitant]
  9. LACTULOSE UNKNOWN STR AND MFR [Suspect]
     Active Substance: LACTULOSE
     Indication: PRODUCT USED FOR UNKNOWN INDICATION
     Route: 048
  10. ANTIBIOTICS [Concomitant]
     Active Substance: UNSPECIFIED INGREDIENT
  11. FOLIC ACID. [Concomitant]
     Active Substance: FOLIC ACID
  12. OMEPRAZOLE. [Concomitant]
     Active Substance: OMEPRAZOLE
  13. DARBEPOETIN ALPHA [Concomitant]
  14. REPAGLINIDE. [Concomitant]
     Active Substance: REPAGLINIDE

REACTIONS (3)
  - Weight increased [None]
  - Pneumonia [None]
  - Pleural effusion [None]

NARRATIVE: CASE EVENT DATE: 2013
